FAERS Safety Report 18230559 (Version 7)
Quarter: 2020Q4

REPORT INFORMATION
  Report Type: Report from Study
  Country: KR (occurrence: KR)
  Receive Date: 20200903
  Receipt Date: 20201208
  Transmission Date: 20210113
  Serious: Yes (Hospitalization)
  Sender: FDA-Public Use
  Company Number: KR-ROCHE-2669065

PATIENT
  Age: 68 Year
  Sex: Male
  Weight: 61.9 kg

DRUGS (30)
  1. NEXIUM [Concomitant]
     Active Substance: ESOMEPRAZOLE MAGNESIUM
     Route: 048
     Dates: start: 20200629
  2. IRCODON [Concomitant]
     Active Substance: OXYCODONE HYDROCHLORIDE
     Indication: ABDOMINAL PAIN
     Route: 048
     Dates: start: 20200902
  3. MEGACE F [Concomitant]
     Indication: DECREASED APPETITE
     Route: 048
     Dates: start: 20200818
  4. URSA [Concomitant]
     Active Substance: URSODIOL
     Indication: PROPHYLAXIS
     Dates: start: 20200818
  5. PACKED RBC [Concomitant]
     Indication: ANAEMIA
     Dates: start: 20200830, end: 20200830
  6. PETHIDINE HCL [Concomitant]
     Indication: PREMEDICATION
     Dates: start: 20200805, end: 20200808
  7. NUTRIFLEX LIPID PERI [Concomitant]
     Dates: start: 20200830, end: 20200830
  8. ABRAXANE [Concomitant]
     Active Substance: PACLITAXEL
     Indication: NEOPLASM MALIGNANT
     Dates: start: 20200909
  9. ATEZOLIZUMAB. [Suspect]
     Active Substance: ATEZOLIZUMAB
     Indication: PANCREATIC CARCINOMA METASTATIC
     Dosage: ON 25/AUG/2020, DATE OF MOST RECENT DOSE OF ATEZOLIZUMAB PRIOR TO AE ONSET.
     Route: 042
     Dates: start: 20200813
  10. TARGIN PR [Concomitant]
     Indication: TUMOUR PAIN
     Dates: start: 20200730
  11. XYZAL [Concomitant]
     Active Substance: LEVOCETIRIZINE DIHYDROCHLORIDE
     Indication: RASH
     Dates: start: 20200825
  12. PROAMIN [Concomitant]
     Dates: start: 20200804, end: 20200804
  13. NAB-PACLITAXEL [Suspect]
     Active Substance: PACLITAXEL
     Indication: PANCREATIC CARCINOMA METASTATIC
     Dosage: ON 25/AUG/2020, RECEIVED  MOST RECENT DOSE OF NAB-PACLITAXEL PRIOR TO AE ONSET: 210 (UNIT NOT REPORT
     Route: 042
     Dates: start: 20200813
  14. NORZYME [Concomitant]
     Indication: DYSPEPSIA
     Dates: start: 20200730
  15. BROPIUM [Concomitant]
     Dates: start: 20200829, end: 20200829
  16. GRASIN [Concomitant]
     Indication: NEUTROPHIL COUNT DECREASED
     Dates: start: 20200830, end: 20200830
  17. CORTISOLU [Concomitant]
     Active Substance: HYDROCORTISONE SODIUM SUCCINATE
     Dates: start: 20200830, end: 20200830
  18. AB-928. [Suspect]
     Active Substance: AB-928
     Indication: PANCREATIC CARCINOMA METASTATIC
     Dosage: DOSE OF LAST AB928 ADMINISTERED PRIOR TO AE ONSET ON 28/AUG/2020
     Route: 048
     Dates: start: 20200813
  19. TWYNSTA [Concomitant]
     Active Substance: AMLODIPINE BESYLATE\TELMISARTAN
     Indication: HYPERTENSION
     Dates: start: 2018
  20. SMECTA [Concomitant]
     Active Substance: MONTMORILLONITE
     Indication: DIARRHOEA
     Dates: start: 20200730, end: 20200812
  21. DESOWEN [Concomitant]
     Active Substance: DESONIDE
     Indication: RASH
     Route: 061
     Dates: start: 20200825
  22. MOTILITONE [Concomitant]
     Active Substance: HERBALS
     Indication: DYSPEPSIA
     Dates: start: 20200802, end: 20200803
  23. NEXIUM [Concomitant]
     Active Substance: ESOMEPRAZOLE MAGNESIUM
     Indication: DYSPEPSIA
     Dates: start: 20200730
  24. IRCODON [Concomitant]
     Active Substance: OXYCODONE HYDROCHLORIDE
     Indication: TUMOUR PAIN
     Dates: start: 20200806
  25. COMBIFLEX PERI [Concomitant]
     Dates: start: 20200831
  26. LAMINA-G [Concomitant]
     Indication: DYSPEPSIA
     Dates: start: 20200901
  27. GEMCITABINE. [Suspect]
     Active Substance: GEMCITABINE
     Indication: PANCREATIC CARCINOMA METASTATIC
     Dosage: ON 25/AUG/2020, RECEIVED THE MOST RECENT DOSE OF GEMCITABINE PRIOR TO AE ONSET: 1700 MG
     Route: 042
     Dates: start: 20200813
  28. PENIRAMIN [Concomitant]
     Indication: PREMEDICATION
     Dates: start: 20200830, end: 20200830
  29. MAGMIL [Concomitant]
     Active Substance: MAGNESIUM HYDROXIDE
     Indication: CONSTIPATION
     Dates: start: 20200830, end: 20200901
  30. HARTMANN^S SOLUTION [Concomitant]
     Active Substance: CALCIUM CHLORIDE\POTASSIUM CHLORIDE\SODIUM CHLORIDE\SODIUM LACTATE
     Dates: start: 20200829, end: 20200902

REACTIONS (1)
  - Abdominal pain [Recovered/Resolved]

NARRATIVE: CASE EVENT DATE: 20200829
